FAERS Safety Report 7954587-2 (Version None)
Quarter: 2011Q4

REPORT INFORMATION
  Report Type: 
  Country: None (occurrence: None)
  Receive Date: 20111202
  Receipt Date: 20111124
  Transmission Date: 20120403
  Serious: Yes (Death, Other)
  Sender: FDA-Public Use
  Company Number: PHHY2011PT100723

PATIENT
  Age: 34 Year
  Sex: Female

DRUGS (4)
  1. FLUDARABINE PHOSPHATE [Concomitant]
     Dosage: UNK UKN, UNK
  2. METHOTREXATE [Concomitant]
     Dosage: UNK UKN, UNK
  3. CYCLOSPORINE [Suspect]
     Indication: STEM CELL TRANSPLANT
     Dosage: UNK UKN, UNK
  4. ALEMTUZUMAB [Concomitant]
     Dosage: UNK UKN, UNK

REACTIONS (11)
  - BK VIRUS INFECTION [None]
  - BACTERIAL INFECTION [None]
  - SEPTIC SHOCK [None]
  - HAEMATURIA [None]
  - BACTERAEMIA [None]
  - MULTI-ORGAN FAILURE [None]
  - GRAFT VERSUS HOST DISEASE IN SKIN [None]
  - CYTOMEGALOVIRUS INFECTION [None]
  - ADENOVIRUS INFECTION [None]
  - CYSTITIS HAEMORRHAGIC [None]
  - BLADDER DISORDER [None]
